FAERS Safety Report 10032534 (Version 1)
Quarter: 2014Q1

REPORT INFORMATION
  Report Type: Report from Study
  Country: US (occurrence: US)
  Receive Date: 20140324
  Receipt Date: 20140324
  Transmission Date: 20141002
  Serious: Yes (Hospitalization)
  Sender: FDA-Public Use
  Company Number: US-BRISTOL-MYERS SQUIBB COMPANY-20546784

PATIENT
  Age: 77 Year
  Sex: Male

DRUGS (30)
  1. BLINDED: DAPAGLIFLOZIN [Suspect]
     Indication: TYPE 2 DIABETES MELLITUS
     Dates: start: 20130905
  2. BLINDED: PLACEBO [Suspect]
     Indication: TYPE 2 DIABETES MELLITUS
     Dates: start: 20130905
  3. GLUCOPHAGE [Suspect]
     Indication: DIABETES MELLITUS
     Route: 048
  4. GLUCOTROL [Suspect]
     Indication: DIABETES MELLITUS
     Route: 048
  5. ASPIRIN [Suspect]
     Indication: CORONARY ARTERY DISEASE
     Route: 048
  6. XARELTO [Suspect]
     Indication: ATRIAL FIBRILLATION
     Route: 048
  7. EZETIMIBE [Concomitant]
     Route: 048
  8. SIMVASTATIN [Concomitant]
     Route: 048
  9. VITAMIN D3 [Concomitant]
     Indication: VITAMIN D DEFICIENCY
     Route: 048
  10. CLEOCIN-T [Concomitant]
     Indication: FOLLICULITIS
     Route: 058
  11. VITAMIN B12 [Concomitant]
     Indication: VITAMIN B12 DEFICIENCY
     Route: 048
  12. ENABLEX [Concomitant]
     Indication: HYPERTONIC BLADDER
     Route: 048
  13. VIBRAMYCIN [Concomitant]
     Indication: FOLLICULITIS
     Route: 048
  14. VITAMIN D [Concomitant]
     Indication: VITAMIN D DEFICIENCY
     Route: 048
  15. PROZAC [Concomitant]
     Indication: DEPRESSION
     Route: 048
  16. MONOPRIL [Concomitant]
     Indication: HYPERTENSION
     Route: 048
  17. LIDOCAINE [Concomitant]
     Indication: DYSURIA
     Dosage: PARSON^S SOLUTION
     Route: 066
  18. HYDRODIURIL [Concomitant]
     Indication: HYPERTENSION
     Route: 048
  19. NORCO [Concomitant]
     Indication: BACK PAIN
     Route: 048
  20. HYDROCORTISONE [Concomitant]
     Indication: FOLLICULITIS
     Route: 058
  21. MOTRIN [Concomitant]
     Indication: PAIN IN EXTREMITY
     Route: 048
  22. PREVACID [Concomitant]
     Indication: GASTROOESOPHAGEAL REFLUX DISEASE
     Route: 048
  23. IMODIUM [Concomitant]
     Indication: DIARRHOEA
     Route: 048
  24. METOPROLOL [Concomitant]
     Indication: HYPERTENSION
     Dosage: TROPROL XL
     Route: 048
  25. OXYCONTIN [Concomitant]
     Indication: PELVIC PAIN
     Route: 048
  26. ELMIRON [Concomitant]
     Indication: PELVIC PAIN
     Route: 048
  27. SANCTURA [Concomitant]
     Indication: MICTURITION URGENCY
     Route: 048
  28. AMBIEN [Concomitant]
     Indication: INSOMNIA
     Route: 048
  29. DOCUSATE [Concomitant]
     Indication: PROPHYLAXIS
     Route: 048
     Dates: start: 20131220
  30. SENOKOT [Concomitant]
     Indication: PROPHYLAXIS
     Route: 048
     Dates: start: 20131220

REACTIONS (1)
  - Diverticulum intestinal haemorrhagic [Recovered/Resolved]
